FAERS Safety Report 6188182-5 (Version None)
Quarter: 2009Q2

REPORT INFORMATION
  Report Type: 
  Country: None (occurrence: None)
  Receive Date: 20090513
  Receipt Date: 20090506
  Transmission Date: 20091009
  Serious: Yes (Hospitalization)
  Sender: FDA-Public Use
  Company Number: US-ASTRAZENECA-2009UW11476

PATIENT
  Age: 91 Year
  Sex: Female
  Weight: 59 kg

DRUGS (10)
  1. NEXIUM [Suspect]
     Route: 048
  2. CRESTOR [Concomitant]
     Route: 048
  3. COZAAR [Concomitant]
  4. ALLEGRA [Concomitant]
  5. RANITIDINE [Concomitant]
  6. ATIVAN [Concomitant]
  7. SINGULAIR [Concomitant]
  8. AMLODIPINE [Concomitant]
  9. ISOSORBIDE [Concomitant]
  10. VITAMINS [Concomitant]
     Indication: SUPPLEMENTATION THERAPY

REACTIONS (2)
  - CHEST DISCOMFORT [None]
  - PLEURISY [None]
